FAERS Safety Report 20586774 (Version 2)
Quarter: 2022Q1

REPORT INFORMATION
  Report Type: Report from Study
  Country: CN (occurrence: CN)
  Receive Date: 20220313
  Receipt Date: 20220322
  Transmission Date: 20220423
  Serious: Yes (Hospitalization)
  Sender: FDA-Public Use
  Company Number: CN-TEVA-2021-CN-1930617

PATIENT
  Age: 62 Year
  Sex: Female
  Weight: 66 kg

DRUGS (129)
  1. BENDAMUSTINE [Suspect]
     Active Substance: BENDAMUSTINE
     Indication: Diffuse large B-cell lymphoma
     Route: 042
     Dates: start: 20200712
  2. POLATUZUMAB VEDOTIN [Suspect]
     Active Substance: POLATUZUMAB VEDOTIN
     Indication: Diffuse large B-cell lymphoma
     Route: 042
     Dates: start: 20200712
  3. RITUXIMAB [Suspect]
     Active Substance: RITUXIMAB
     Indication: Diffuse large B-cell lymphoma
     Route: 041
     Dates: start: 20200711
  4. SULFAMETHOXAZOLE [Concomitant]
     Active Substance: SULFAMETHOXAZOLE
     Route: 065
     Dates: start: 20200711, end: 20200713
  5. GANCICLOVIR [Concomitant]
     Active Substance: GANCICLOVIR
     Route: 048
     Dates: start: 20200711
  6. POTASSIUM CHLORIDE [Concomitant]
     Active Substance: POTASSIUM CHLORIDE
     Indication: Hypokalaemia
     Dosage: SUSTAINED RELEASE
     Route: 065
     Dates: start: 20201019, end: 20201019
  7. POTASSIUM CHLORIDE [Concomitant]
     Active Substance: POTASSIUM CHLORIDE
     Indication: Supplementation therapy
     Dosage: SUSTAINED RELEASE
     Dates: start: 20200909, end: 20200911
  8. POTASSIUM CHLORIDE [Concomitant]
     Active Substance: POTASSIUM CHLORIDE
     Dosage: SUSTAINED RELEASE
     Dates: start: 20201003, end: 20201004
  9. POTASSIUM CHLORIDE [Concomitant]
     Active Substance: POTASSIUM CHLORIDE
     Dosage: SUSTAINED RELEASE
     Dates: start: 20200713, end: 20200714
  10. POTASSIUM CHLORIDE [Concomitant]
     Active Substance: POTASSIUM CHLORIDE
     Dosage: SUSTAINED RELEASE
     Dates: start: 20200802, end: 20200803
  11. POTASSIUM CHLORIDE [Concomitant]
     Active Substance: POTASSIUM CHLORIDE
     Dosage: SUSTAINED RELEASE
     Dates: start: 20200716, end: 20200718
  12. POTASSIUM CHLORIDE [Concomitant]
     Active Substance: POTASSIUM CHLORIDE
     Dosage: SUSTAINED RELEASE
     Dates: start: 20200709, end: 20200713
  13. POTASSIUM CHLORIDE [Concomitant]
     Active Substance: POTASSIUM CHLORIDE
     Dosage: SUSTAINED RELEASE
     Route: 065
     Dates: start: 20200824, end: 20200824
  14. POTASSIUM CHLORIDE [Concomitant]
     Active Substance: POTASSIUM CHLORIDE
     Route: 065
     Dates: start: 20201003, end: 20201004
  15. SOLU-MEDROL [Concomitant]
     Active Substance: METHYLPREDNISOLONE SODIUM SUCCINATE
     Indication: Prophylaxis
     Dosage: 5 MILLIGRAM DAILY;
     Route: 042
     Dates: start: 20200926, end: 20201006
  16. SOLU-MEDROL [Concomitant]
     Active Substance: METHYLPREDNISOLONE SODIUM SUCCINATE
     Indication: Pruritus
     Dosage: 5 MILLIGRAM DAILY;
     Route: 042
     Dates: start: 20201010, end: 20201010
  17. SOLU-MEDROL [Concomitant]
     Active Substance: METHYLPREDNISOLONE SODIUM SUCCINATE
     Dates: start: 20200731, end: 20200731
  18. ACETYLCYSTEINE [Concomitant]
     Active Substance: ACETYLCYSTEINE
     Indication: Productive cough
     Dates: start: 20201020, end: 20201030
  19. BUDESONIDE [Concomitant]
     Active Substance: BUDESONIDE
     Indication: Wheezing
     Dosage: 4 MILLIGRAM DAILY; AEROSOL
     Route: 055
     Dates: start: 20200807
  20. CLINDAMYCIN PHOSPHATE [Concomitant]
     Active Substance: CLINDAMYCIN PHOSPHATE
     Dates: start: 20201020, end: 20201104
  21. COMBIVENT [Concomitant]
     Active Substance: ALBUTEROL SULFATE\IPRATROPIUM BROMIDE
     Indication: Bronchospasm
     Dates: start: 20201020, end: 20201104
  22. FUROSEMIDE [Concomitant]
     Active Substance: FUROSEMIDE
     Indication: Polyuria
     Route: 065
     Dates: start: 20200709, end: 20200714
  23. FUROSEMIDE [Concomitant]
     Active Substance: FUROSEMIDE
     Route: 065
     Dates: start: 20201023, end: 20201023
  24. LANSOPRAZOLE [Concomitant]
     Active Substance: LANSOPRAZOLE
     Indication: Prophylaxis
     Route: 065
     Dates: start: 20201020, end: 20201104
  25. LANSOPRAZOLE [Concomitant]
     Active Substance: LANSOPRAZOLE
     Dates: start: 20200806, end: 20200810
  26. XYZAL [Concomitant]
     Active Substance: LEVOCETIRIZINE DIHYDROCHLORIDE
     Indication: Rash
     Route: 065
     Dates: start: 20200820, end: 20200901
  27. CALAMINE LOTION [Concomitant]
     Active Substance: CALAMINE LOTION
     Indication: Rash
     Route: 065
     Dates: start: 20200902
  28. CALAMINE LOTION [Concomitant]
     Active Substance: CALAMINE LOTION
     Route: 065
     Dates: start: 20200818, end: 20201110
  29. SODIUM BICARBONATE [Concomitant]
     Active Substance: SODIUM BICARBONATE
     Indication: Prophylaxis
     Route: 065
     Dates: start: 20200709, end: 20200713
  30. SODIUM BICARBONATE [Concomitant]
     Active Substance: SODIUM BICARBONATE
     Indication: Urine alkalinisation therapy
     Route: 065
     Dates: start: 20200909, end: 20200911
  31. SODIUM BICARBONATE [Concomitant]
     Active Substance: SODIUM BICARBONATE
     Route: 065
     Dates: start: 20200820, end: 20200824
  32. SODIUM BICARBONATE [Concomitant]
     Active Substance: SODIUM BICARBONATE
     Route: 065
     Dates: start: 20200716, end: 20200723
  33. TROPISETRON HYDROCHLORIDE [Concomitant]
     Active Substance: TROPISETRON HYDROCHLORIDE
     Indication: Prophylaxis
     Route: 065
     Dates: start: 20200909, end: 20200909
  34. TROPISETRON HYDROCHLORIDE [Concomitant]
     Active Substance: TROPISETRON HYDROCHLORIDE
     Route: 065
     Dates: start: 20200909, end: 20200910
  35. TROPISETRON HYDROCHLORIDE [Concomitant]
     Active Substance: TROPISETRON HYDROCHLORIDE
     Route: 065
     Dates: start: 20201009, end: 20201009
  36. TROPISETRON HYDROCHLORIDE [Concomitant]
     Active Substance: TROPISETRON HYDROCHLORIDE
     Route: 065
     Dates: start: 20200712, end: 20200713
  37. TROPISETRON HYDROCHLORIDE [Concomitant]
     Active Substance: TROPISETRON HYDROCHLORIDE
     Route: 065
     Dates: start: 20201009, end: 20201010
  38. LORATADINE [Concomitant]
     Active Substance: LORATADINE
     Indication: Rash
     Route: 065
     Dates: start: 20200810, end: 20200813
  39. LORATADINE [Concomitant]
     Active Substance: LORATADINE
     Indication: Pruritus
     Route: 065
     Dates: start: 20200910, end: 20200911
  40. LORATADINE [Concomitant]
     Active Substance: LORATADINE
     Route: 065
     Dates: start: 20201010, end: 20201010
  41. LORATADINE [Concomitant]
     Active Substance: LORATADINE
     Route: 065
     Dates: start: 20200727, end: 20200729
  42. DIPHENHYDRAMINE HYDROCHLORIDE [Concomitant]
     Active Substance: DIPHENHYDRAMINE HYDROCHLORIDE
     Indication: Prophylaxis
     Route: 065
     Dates: start: 20200711, end: 20200712
  43. DIPHENHYDRAMINE HYDROCHLORIDE [Concomitant]
     Active Substance: DIPHENHYDRAMINE HYDROCHLORIDE
     Route: 065
     Dates: start: 20200909, end: 20200909
  44. DIPHENHYDRAMINE HYDROCHLORIDE [Concomitant]
     Active Substance: DIPHENHYDRAMINE HYDROCHLORIDE
     Route: 065
     Dates: start: 20201009, end: 20201009
  45. DIPHENHYDRAMINE HYDROCHLORIDE [Concomitant]
     Active Substance: DIPHENHYDRAMINE HYDROCHLORIDE
     Route: 065
     Dates: start: 20201010, end: 20201010
  46. LIDOCAINE HYDROCHLORIDE [Concomitant]
     Active Substance: LIDOCAINE HYDROCHLORIDE
     Indication: Stomatitis
     Route: 065
     Dates: start: 20200910, end: 20200910
  47. LIDOCAINE HYDROCHLORIDE [Concomitant]
     Active Substance: LIDOCAINE HYDROCHLORIDE
     Indication: Stomatitis
     Route: 065
     Dates: start: 20200703, end: 20200703
  48. LIDOCAINE HYDROCHLORIDE [Concomitant]
     Active Substance: LIDOCAINE HYDROCHLORIDE
     Route: 065
     Dates: start: 20200723, end: 20200723
  49. PREDNISONE ACETATE [Concomitant]
     Active Substance: PREDNISONE ACETATE
     Indication: Prophylaxis
     Dosage: 1 IN 1 AS REQUIRED
     Route: 048
     Dates: start: 20200909, end: 20200909
  50. PREDNISONE ACETATE [Concomitant]
     Active Substance: PREDNISONE ACETATE
     Route: 048
     Dates: start: 20200711, end: 20200712
  51. PREDNISONE ACETATE [Concomitant]
     Active Substance: PREDNISONE ACETATE
     Dosage: AS NEEDED
     Route: 048
     Dates: start: 20200730, end: 20200730
  52. PREDNISONE ACETATE [Concomitant]
     Active Substance: PREDNISONE ACETATE
     Dosage: 35 MILLIGRAM DAILY;
     Route: 048
     Dates: start: 20201112, end: 20201117
  53. PREDNISONE ACETATE [Concomitant]
     Active Substance: PREDNISONE ACETATE
     Dosage: 40 MILLIGRAM DAILY;
     Route: 048
     Dates: start: 20201102, end: 20201111
  54. PREDNISONE ACETATE [Concomitant]
     Active Substance: PREDNISONE ACETATE
     Dosage: 30 MILLIGRAM DAILY;
     Route: 048
     Dates: start: 20201118, end: 20201124
  55. PREDNISONE ACETATE [Concomitant]
     Active Substance: PREDNISONE ACETATE
     Dosage: 275 MILLIGRAM DAILY;
     Route: 048
     Dates: start: 20201125, end: 20201201
  56. PREDNISONE ACETATE [Concomitant]
     Active Substance: PREDNISONE ACETATE
     Route: 048
     Dates: start: 20201209, end: 20201215
  57. PREDNISONE ACETATE [Concomitant]
     Active Substance: PREDNISONE ACETATE
     Route: 048
     Dates: start: 20201216, end: 20201222
  58. PREDNISONE ACETATE [Concomitant]
     Active Substance: PREDNISONE ACETATE
     Dosage: 20 MILLIGRAM DAILY;
     Route: 048
     Dates: start: 20201202, end: 20201208
  59. PREDNISONE ACETATE [Concomitant]
     Active Substance: PREDNISONE ACETATE
     Route: 048
     Dates: start: 20201223, end: 20201229
  60. PREDNISONE ACETATE [Concomitant]
     Active Substance: PREDNISONE ACETATE
     Dosage: 100 MG, PRN
     Route: 048
     Dates: start: 20201009, end: 20201009
  61. SOLU-MEDROL [Concomitant]
     Active Substance: METHYLPREDNISOLONE SODIUM SUCCINATE
     Indication: Antiinflammatory therapy
     Dosage: 20 MILLIGRAM DAILY;
     Route: 065
     Dates: start: 20200929, end: 20201002
  62. SOLU-MEDROL [Concomitant]
     Active Substance: METHYLPREDNISOLONE SODIUM SUCCINATE
     Indication: Interstitial lung disease
     Dosage: 10 MILLIGRAM DAILY;
     Route: 065
     Dates: start: 20200929, end: 20201006
  63. DEXAMETHASONE SODIUM PHOSPHATE [Concomitant]
     Active Substance: DEXAMETHASONE SODIUM PHOSPHATE
     Indication: Prophylaxis
     Dosage: 5 MILLIGRAM DAILY; INTRAVITREAL
     Route: 042
     Dates: start: 20200731, end: 20200731
  64. DEXAMETHASONE SODIUM PHOSPHATE [Concomitant]
     Active Substance: DEXAMETHASONE SODIUM PHOSPHATE
     Indication: Pruritus
     Dosage: 5 MILLIGRAM DAILY;
     Route: 042
     Dates: start: 20201010, end: 20201010
  65. IBUPROFEN SUSTAINED RELEASE [Concomitant]
     Indication: Pyrexia
     Route: 065
     Dates: start: 20201009, end: 20201009
  66. IBUPROFEN SUSTAINED RELEASE [Concomitant]
     Dates: start: 20200711, end: 20200712
  67. IBUPROFEN SUSTAINED RELEASE [Concomitant]
     Dates: start: 20200712, end: 20200712
  68. IBUPROFEN SUSTAINED RELEASE [Concomitant]
     Dates: start: 20200714, end: 20200715
  69. IBUPROFEN SUSTAINED RELEASE [Concomitant]
     Dates: start: 20200731, end: 20200731
  70. IBUPROFEN SUSTAINED RELEASE [Concomitant]
     Dates: start: 20200928, end: 20200928
  71. LYSINE ACETYLSALICYLATE [Concomitant]
     Active Substance: ASPIRIN DL-LYSINE
     Dates: start: 20200713, end: 20200713
  72. IMIPENEM AND CILASTATIN SODIUM [Concomitant]
     Active Substance: CILASTATIN SODIUM\IMIPENEM
     Indication: Pyrexia
     Dates: start: 20200714, end: 20200714
  73. IMIPENEM AND CILASTATIN SODIUM [Concomitant]
     Active Substance: CILASTATIN SODIUM\IMIPENEM
     Indication: Infection
  74. METOCLOPRAMIDE DIHYDROCHLORIDE [Concomitant]
     Indication: Prophylaxis of nausea and vomiting
     Route: 065
     Dates: start: 20200715, end: 20200715
  75. ALLOPURINOL [Concomitant]
     Active Substance: ALLOPURINOL
     Indication: Blood uric acid
     Route: 065
     Dates: start: 20200709, end: 20200709
  76. ALLOPURINOL [Concomitant]
     Active Substance: ALLOPURINOL
     Indication: Urine alkalinisation therapy
     Dates: start: 20200711, end: 20200715
  77. ALLOPURINOL [Concomitant]
     Active Substance: ALLOPURINOL
     Dates: start: 20200709, end: 20200715
  78. ALLOPURINOL [Concomitant]
     Active Substance: ALLOPURINOL
     Dates: start: 20200716, end: 20200723
  79. ALLOPURINOL [Concomitant]
     Active Substance: ALLOPURINOL
     Dates: start: 20200820, end: 20200824
  80. ALLOPURINOL [Concomitant]
     Active Substance: ALLOPURINOL
     Dates: start: 20200909, end: 20200911
  81. GLYCOSAMINOGLYCANS [Concomitant]
     Active Substance: GLYCOSAMINOGLYCANS
     Indication: Prophylaxis
     Route: 065
     Dates: start: 20200709, end: 20200709
  82. AVELOX [Concomitant]
     Active Substance: MOXIFLOXACIN HYDROCHLORIDE
     Indication: Infection
     Route: 065
     Dates: start: 20200713, end: 20200713
  83. AVELOX [Concomitant]
     Active Substance: MOXIFLOXACIN HYDROCHLORIDE
     Route: 065
     Dates: start: 20201113, end: 20201119
  84. CALCIUM GLUCONATE [Concomitant]
     Active Substance: CALCIUM GLUCONATE
     Route: 065
     Dates: start: 20200714, end: 20200714
  85. INDOMETHACIN [Concomitant]
     Active Substance: INDOMETHACIN
     Dates: start: 20200714, end: 20200714
  86. METOPROLOL TARTRATE [Concomitant]
     Active Substance: METOPROLOL TARTRATE
     Indication: Sinus tachycardia
     Route: 065
     Dates: start: 20200715, end: 20200715
  87. MAGNESIUM ASPARTATE\POTASSIUM ASPARTATE [Concomitant]
     Active Substance: MAGNESIUM ASPARTATE\POTASSIUM ASPARTATE
     Indication: Prophylaxis
     Route: 065
     Dates: start: 20200714, end: 20200714
  88. SULFAMETHOXAZOLE [Concomitant]
     Active Substance: SULFAMETHOXAZOLE
     Indication: Pyrexia
     Route: 065
     Dates: start: 20200711, end: 20200726
  89. CYTARABINE [Concomitant]
     Active Substance: CYTARABINE
     Indication: Prophylaxis
     Route: 065
     Dates: start: 20200731, end: 20200731
  90. POTASSIUM CITRATE [Concomitant]
     Active Substance: POTASSIUM CITRATE
     Indication: Hypokalaemia
     Route: 065
     Dates: start: 20201030, end: 20201030
  91. POTASSIUM CITRATE [Concomitant]
     Active Substance: POTASSIUM CITRATE
     Route: 065
     Dates: start: 20200717, end: 20200720
  92. OMEPRAZOLE SODIUM [Concomitant]
     Active Substance: OMEPRAZOLE SODIUM
     Indication: Prophylaxis
     Route: 042
     Dates: start: 20200929, end: 20201006
  93. OMEPRAZOLE SODIUM [Concomitant]
     Active Substance: OMEPRAZOLE SODIUM
     Route: 042
     Dates: start: 20201010, end: 20201010
  94. COMPOUND CHLORHEXIDINE GARGLE [Concomitant]
     Route: 065
     Dates: start: 20200716, end: 20200716
  95. COMPOUND METHOXYPHENAMINE [Concomitant]
     Indication: Asthma
     Route: 065
     Dates: start: 20200718, end: 20200723
  96. Yunnan Baiyao capsule [Concomitant]
  97. NYSFUNGIN [Concomitant]
     Indication: Stomatitis
     Route: 065
     Dates: start: 20200723, end: 20200723
  98. GENTAMICIN SULFATE [Concomitant]
     Active Substance: GENTAMICIN SULFATE
     Indication: Stomatitis
     Route: 065
     Dates: start: 20200723, end: 20200723
  99. LIDOCAINE HYDROCHLORIDE [Concomitant]
     Active Substance: LIDOCAINE HYDROCHLORIDE
     Indication: Prophylaxis
     Dates: start: 20200910, end: 20200910
  100. LIDOCAINE HYDROCHLORIDE [Concomitant]
     Active Substance: LIDOCAINE HYDROCHLORIDE
     Indication: Stomatitis
     Dates: start: 20200703, end: 20200703
  101. LIDOCAINE HYDROCHLORIDE [Concomitant]
     Active Substance: LIDOCAINE HYDROCHLORIDE
     Dates: start: 20200723, end: 20200723
  102. RIVAROXABAN [Concomitant]
     Active Substance: RIVAROXABAN
     Indication: Venous thrombosis
     Route: 065
     Dates: start: 20201104, end: 20201104
  103. RIVAROXABAN [Concomitant]
     Active Substance: RIVAROXABAN
     Route: 065
     Dates: start: 20201201
  104. etamsylate injection [Concomitant]
     Indication: Haemorrhage prophylaxis
     Route: 065
     Dates: start: 20200718, end: 20200719
  105. CASPOFUNGIN ACETATE [Concomitant]
     Active Substance: CASPOFUNGIN ACETATE
     Indication: Infection
     Route: 065
     Dates: start: 20201020, end: 20201029
  106. ALBUMIN HUMAN [Concomitant]
     Active Substance: ALBUMIN HUMAN
     Indication: Hypoalbuminaemia
     Route: 065
     Dates: start: 20200716, end: 20200717
  107. ALBUMIN HUMAN [Concomitant]
     Active Substance: ALBUMIN HUMAN
     Route: 065
     Dates: start: 20200714, end: 20200714
  108. GRANULOCYTE COLONY-STIMULATING FACTOR NOS [Concomitant]
     Active Substance: GRANULOCYTE COLONY-STIMULATING FACTOR NOS
     Indication: Leukopenia
     Route: 065
     Dates: start: 20201012, end: 20201012
  109. GRANULOCYTE COLONY-STIMULATING FACTOR NOS [Concomitant]
     Active Substance: GRANULOCYTE COLONY-STIMULATING FACTOR NOS
     Dates: start: 20200912, end: 20200912
  110. GRANULOCYTE COLONY-STIMULATING FACTOR NOS [Concomitant]
     Active Substance: GRANULOCYTE COLONY-STIMULATING FACTOR NOS
     Dates: start: 20200715, end: 20200715
  111. MAGNESIUM ISOGLYCYRRHIZINATE [Concomitant]
     Active Substance: MAGNESIUM ISOGLYCYRRHIZINATE
     Route: 065
     Dates: start: 20200711, end: 20200713
  112. clarithyromin [Concomitant]
     Indication: Anti-infective therapy
     Route: 065
     Dates: start: 20201106, end: 20201112
  113. SODIUM CHLORIDE [Concomitant]
     Active Substance: SODIUM CHLORIDE
     Indication: Productive cough
     Route: 065
     Dates: start: 20200716, end: 20200716
  114. AMBROXOL HYDROCHLORIDE [Concomitant]
     Active Substance: AMBROXOL HYDROCHLORIDE
     Indication: Productive cough
     Dates: start: 20200715
  115. AMBROXOL HYDROCHLORIDE [Concomitant]
     Active Substance: AMBROXOL HYDROCHLORIDE
     Dates: start: 20200718, end: 20200719
  116. AMBROXOL HYDROCHLORIDE [Concomitant]
     Active Substance: AMBROXOL HYDROCHLORIDE
     Dates: end: 20200723
  117. AMBROXOL HYDROCHLORIDE [Concomitant]
     Active Substance: AMBROXOL HYDROCHLORIDE
     Dates: start: 20201017
  118. GLYCERIN [Concomitant]
     Active Substance: GLYCERIN
     Indication: Constipation
     Route: 065
     Dates: start: 20200801, end: 20200802
  119. GLYCERIN [Concomitant]
     Active Substance: GLYCERIN
     Route: 065
     Dates: start: 20201020, end: 20201020
  120. SPIRONOLACTONE [Concomitant]
     Active Substance: SPIRONOLACTONE
     Indication: Polyuria
     Route: 065
     Dates: start: 20200717, end: 20200717
  121. OXYGEN [Concomitant]
     Active Substance: OXYGEN
     Indication: Asthma
     Route: 065
     Dates: start: 20200716, end: 20200723
  122. CLARITHROMYCIN [Concomitant]
     Active Substance: CLARITHROMYCIN
     Indication: Anti-infective therapy
     Dates: start: 20201106, end: 20201112
  123. EBASTINE [Concomitant]
     Active Substance: EBASTINE
     Route: 065
     Dates: start: 20200820, end: 20200828
  124. KANG FU XIN YE [Concomitant]
     Indication: Stomatitis
     Route: 065
     Dates: start: 20200723, end: 20200723
  125. BICYCLOL [Concomitant]
     Active Substance: BICYCLOL
     Route: 065
     Dates: start: 20200716, end: 20200723
  126. THYMOPENTIN [Concomitant]
     Active Substance: THYMOPENTIN
     Route: 065
     Dates: start: 20201028, end: 20201029
  127. OMEPRAZOLE AND SODIUM BICARBONATE [Concomitant]
     Active Substance: OMEPRAZOLE\SODIUM BICARBONATE
     Route: 065
     Dates: start: 20201103, end: 20201103
  128. HEPARIN SODIUM [Concomitant]
     Active Substance: HEPARIN SODIUM
     Route: 065
     Dates: start: 20201019, end: 20201019
  129. COMPOUND ELECTROLYTES AND GLUCOSE INJECTION MG3 [Concomitant]
     Route: 065
     Dates: start: 20200709, end: 20200713

REACTIONS (2)
  - Interstitial lung disease [Recovered/Resolved]
  - Pneumonia [Recovered/Resolved]

NARRATIVE: CASE EVENT DATE: 20200713
